FAERS Safety Report 8446937-8 (Version None)
Quarter: 2012Q2

REPORT INFORMATION
  Report Type: 
  Country: None (occurrence: None)
  Receive Date: 20120613
  Receipt Date: 20120613
  Transmission Date: 20120825
  Serious: Yes (Other)
  Sender: FDA-Public Use
  Company Number: None

PATIENT
  Age: 40 Year
  Sex: Female

DRUGS (2)
  1. NORCO -HYDROCODONE/APAP- 10/325 MG [Concomitant]
  2. BUTRANS [Suspect]
     Indication: NECK PAIN
     Dosage: 1  10 MCG PATCH TRANSDERMAL  7DAYS
     Route: 062
     Dates: start: 20111101, end: 20120101

REACTIONS (4)
  - APPLICATION SITE PRURITUS [None]
  - APPLICATION SITE ERYTHEMA [None]
  - APPLICATION SITE EXFOLIATION [None]
  - APPLICATION SITE EROSION [None]
